FAERS Safety Report 12231184 (Version 3)
Quarter: 2016Q2

REPORT INFORMATION
  Report Type: Spontaneous
  Country: US (occurrence: US)
  Receive Date: 20160401
  Receipt Date: 20160420
  Transmission Date: 20160815
  Serious: Yes (Hospitalization, Other)
  Sender: FDA-Public Use
  Company Number: US-MDT-ADR-2016-00352

PATIENT
  Age: 44 Year
  Sex: Female

DRUGS (11)
  1. LIORESAL [Suspect]
     Active Substance: BACLOFEN
     Dosage: 150.2MCG/DAY
     Route: 037
  2. PROTONIX [Suspect]
     Active Substance: PANTOPRAZOLE SODIUM
  3. VALIUM [Suspect]
     Active Substance: DIAZEPAM
     Dosage: AS NEEDED
  4. FIORICET [Suspect]
     Active Substance: ACETAMINOPHEN\BUTALBITAL\CAFFEINE
  5. COLACE [Suspect]
     Active Substance: DOCUSATE SODIUM
  6. ZOFRAN [Suspect]
     Active Substance: ONDANSETRON HYDROCHLORIDE
  7. ORAL BACLOFEN [Suspect]
     Active Substance: BACLOFEN
     Dosage: AS NEEDED
     Route: 048
  8. RELAFEN [Suspect]
     Active Substance: NABUMETONE
  9. FLORINEF ACETATE [Suspect]
     Active Substance: FLUDROCORTISONE ACETATE
  10. NORCO [Suspect]
     Active Substance: ACETAMINOPHEN\HYDROCODONE BITARTRATE
  11. LIORESAL [Suspect]
     Active Substance: BACLOFEN
     Dosage: 344MCG/DAY
     Route: 037

REACTIONS (10)
  - Chills [Recovered/Resolved]
  - Pyrexia [Recovered/Resolved]
  - No therapeutic response [Recovered/Resolved]
  - Musculoskeletal stiffness [Recovered/Resolved]
  - Pseudomonas test positive [Recovered/Resolved]
  - Asthenia [Recovered/Resolved]
  - Cerebrospinal fluid leakage [Recovered/Resolved]
  - Meningitis [Recovered/Resolved]
  - Muscle spasticity [Recovered/Resolved]
  - Headache [Recovered/Resolved]

NARRATIVE: CASE EVENT DATE: 201602
